FAERS Safety Report 20452224 (Version 2)
Quarter: 2022Q1

REPORT INFORMATION
  Report Type: Report from Study
  Country: US (occurrence: US)
  Receive Date: 20220209
  Receipt Date: 20220211
  Transmission Date: 20220423
  Serious: Yes (Other)
  Sender: FDA-Public Use
  Company Number: US-ABBVIE-22K-163-4270562-00

PATIENT
  Sex: Female
  Weight: 81.266 kg

DRUGS (4)
  1. HUMIRA [Suspect]
     Active Substance: ADALIMUMAB
     Indication: Rheumatoid arthritis
     Dosage: CITRATE FREE
     Route: 058
     Dates: start: 2012
  2. PFIZER-BIONTECH COVID-19 VACCINE [Concomitant]
     Active Substance: TOZINAMERAN
     Indication: COVID-19 immunisation
     Dosage: PFIZER
     Route: 030
     Dates: start: 20210119, end: 20210119
  3. PFIZER-BIONTECH COVID-19 VACCINE [Concomitant]
     Active Substance: TOZINAMERAN
     Dosage: PFIZER
     Route: 030
     Dates: start: 20210210, end: 20210210
  4. PFIZER-BIONTECH COVID-19 VACCINE [Concomitant]
     Active Substance: TOZINAMERAN
     Dosage: PFIZER
     Route: 030
     Dates: start: 20211011, end: 20211011

REACTIONS (7)
  - Aortic stenosis [Not Recovered/Not Resolved]
  - Product administration error [Unknown]
  - Hypothyroidism [Recovering/Resolving]
  - Gastrooesophageal reflux disease [Recovering/Resolving]
  - Inappropriate schedule of product administration [Unknown]
  - COVID-19 [Not Recovered/Not Resolved]
  - Arthralgia [Not Recovered/Not Resolved]

NARRATIVE: CASE EVENT DATE: 20170101
